FAERS Safety Report 7059614-5 (Version None)
Quarter: 2010Q4

REPORT INFORMATION
  Report Type: 
  Country: None (occurrence: None)
  Receive Date: 20101025
  Receipt Date: 20101014
  Transmission Date: 20110411
  Serious: Yes (Other)
  Sender: FDA-Public Use
  Company Number: ES-ASTRAZENECA-2010SE41897

PATIENT
  Age: 34 Year
  Sex: Female

DRUGS (10)
  1. MEROPENEM [Suspect]
     Indication: CHOLECYSTITIS ACUTE
     Route: 042
     Dates: start: 20100719, end: 20100731
  2. MEROPENEM [Suspect]
     Indication: RESPIRATORY TRACT INFECTION
     Route: 042
     Dates: start: 20100719, end: 20100731
  3. ACYCLOVIR [Suspect]
     Indication: BONE MARROW TRANSPLANT
     Dates: start: 20100713, end: 20100803
  4. AMIKACIN [Suspect]
     Indication: NEUTROPENIA
     Route: 042
     Dates: start: 20100713, end: 20100729
  5. CANCIDAS [Suspect]
     Indication: NEUTROPENIA
     Dosage: ONE VIAL 10 ML SOLUTION FOR PERFUSION
     Dates: start: 20100713, end: 20100805
  6. CYCLOSPORINE [Suspect]
     Indication: BONE MARROW TRANSPLANT
     Route: 065
     Dates: start: 20100713
  7. ZYVOX [Suspect]
     Indication: RESPIRATORY TRACT INFECTION
     Route: 042
     Dates: start: 20100719, end: 20100726
  8. PERFALGAN [Concomitant]
     Indication: ABDOMINAL PAIN
     Dosage: 10 MG/ML SOLUTION FOR PERFUSION
     Dates: start: 20100718, end: 20100719
  9. SEGURIL [Concomitant]
     Indication: CARDIAC FAILURE
     Dosage: 20 MG INJECTION SOLUTION IN AMPOULES, 5 AMPOULES OF 2 ML
     Dates: start: 20100718
  10. URBASON [Concomitant]
     Indication: CHRONIC OBSTRUCTIVE PULMONARY DISEASE
     Dosage: 20 MG POWDER AND SOLVENT FOR INJECTION SOLUTION, 3 LYOPHILIZED AMPOULES+3 SOLVENT AMPOULES
     Dates: start: 20100718

REACTIONS (2)
  - HEPATITIS [None]
  - HYPERBILIRUBINAEMIA [None]
